FAERS Safety Report 21237767 (Version 1)
Quarter: 2022Q3

REPORT INFORMATION
  Report Type: Spontaneous
  Country: US (occurrence: US)
  Receive Date: 20220822
  Receipt Date: 20220822
  Transmission Date: 20221027
  Serious: No
  Sender: FDA-Public Use
  Company Number: US-APOTEX-2022AP009446

PATIENT
  Sex: Female

DRUGS (3)
  1. GUANFACINE [Suspect]
     Active Substance: GUANFACINE
     Indication: Disturbance in attention
     Dosage: 1 DOSAGE FORM, Q.H.S.
     Route: 065
     Dates: start: 202204, end: 20220612
  2. ARMOUR THYROID [Concomitant]
     Active Substance: THYROID, PORCINE
     Indication: Hypothyroidism
     Dosage: 1 DOSAGE FORM, Q.AM (60 MG AND 75MG 1 TABLET IN THE MORNING WITH ALTERNATING DOSE)
     Route: 065
  3. ARMOUR THYROID [Concomitant]
     Active Substance: THYROID, PORCINE
     Indication: Hypothyroidism
     Dosage: 1 DOSAGE FORM, Q.AM (60MG AND 75MG 1 TABLET IN THE MORNING WITH ALTERNATING DOSE)
     Route: 065

REACTIONS (4)
  - Insomnia [Recovered/Resolved]
  - Dyspnoea [Recovered/Resolved]
  - Dry mouth [Recovered/Resolved]
  - Somnolence [Recovered/Resolved]

NARRATIVE: CASE EVENT DATE: 20220101
